FAERS Safety Report 15467635 (Version 1)
Quarter: 2018Q4

REPORT INFORMATION
  Report Type: Spontaneous
  Country: ES (occurrence: ES)
  Receive Date: 20181005
  Receipt Date: 20181005
  Transmission Date: 20190204
  Serious: Yes (Hospitalization, Other)
  Sender: FDA-Public Use
  Company Number: ES-BAUSCH-BL-2018-027088

PATIENT
  Age: 61 Year
  Sex: Female

DRUGS (16)
  1. FOLINIC ACID [Suspect]
     Active Substance: LEUCOVORIN
     Indication: LARGE INTESTINE PERFORATION
     Route: 065
     Dates: start: 20160713, end: 20160713
  2. CAPECITABINE. [Suspect]
     Active Substance: CAPECITABINE
     Indication: METASTASES TO LIVER
     Route: 065
  3. BEVACIZUMAB. [Suspect]
     Active Substance: BEVACIZUMAB
     Indication: LARGE INTESTINE PERFORATION
  4. OXALIPLATIN. [Suspect]
     Active Substance: OXALIPLATIN
     Indication: METASTASES TO LIVER
     Route: 065
     Dates: start: 20141223, end: 20141223
  5. ZALTRAP [Suspect]
     Active Substance: ZIV-AFLIBERCEPT
     Indication: METASTASES TO LIVER
     Route: 065
     Dates: start: 20170711, end: 20180425
  6. CAPECITABINE. [Suspect]
     Active Substance: CAPECITABINE
     Indication: LARGE INTESTINE PERFORATION
  7. BEVACIZUMAB. [Suspect]
     Active Substance: BEVACIZUMAB
     Indication: METASTASES TO LIVER
     Route: 065
     Dates: start: 20160713, end: 20160713
  8. FLUOROURACIL. [Suspect]
     Active Substance: FLUOROURACIL
     Indication: METASTASES TO LIVER
     Route: 065
     Dates: start: 20170711, end: 20180425
  9. IRINOTECAN [Suspect]
     Active Substance: IRINOTECAN
     Indication: LARGE INTESTINE PERFORATION
  10. FLUOROURACIL. [Suspect]
     Active Substance: FLUOROURACIL
     Indication: LARGE INTESTINE PERFORATION
  11. OXALIPLATIN. [Suspect]
     Active Substance: OXALIPLATIN
     Route: 065
     Dates: start: 20170125, end: 20170125
  12. OXALIPLATIN. [Suspect]
     Active Substance: OXALIPLATIN
     Indication: LARGE INTESTINE PERFORATION
     Route: 065
  13. OXALIPLATIN. [Suspect]
     Active Substance: OXALIPLATIN
     Route: 065
     Dates: start: 20160713, end: 20160713
  14. FOLINIC ACID [Suspect]
     Active Substance: LEUCOVORIN
     Indication: METASTASES TO LIVER
     Route: 065
     Dates: start: 20170711, end: 20180425
  15. ZALTRAP [Suspect]
     Active Substance: ZIV-AFLIBERCEPT
     Indication: LARGE INTESTINE PERFORATION
  16. IRINOTECAN [Suspect]
     Active Substance: IRINOTECAN
     Indication: METASTASES TO LIVER
     Route: 065
     Dates: start: 20170711, end: 20180425

REACTIONS (9)
  - Neurotoxicity [Unknown]
  - Metastases to liver [Unknown]
  - Neurotoxicity [Unknown]
  - Hypersensitivity [Unknown]
  - Neutropenia [Unknown]
  - Neutropenia [Unknown]
  - Metastatic neoplasm [Unknown]
  - Neurotoxicity [Not Recovered/Not Resolved]
  - Asthenia [Unknown]

NARRATIVE: CASE EVENT DATE: 2014
